FAERS Safety Report 18202721 (Version 1)
Quarter: 2020Q3

REPORT INFORMATION
  Report Type: Spontaneous
  Country: US (occurrence: US)
  Receive Date: 20200827
  Receipt Date: 20200827
  Transmission Date: 20201103
  Serious: Yes (Other)
  Sender: FDA-Public Use
  Company Number: None

PATIENT
  Age: 42 Year
  Sex: Male
  Weight: 110.9 kg

DRUGS (10)
  1. ACETAMINOPHEN. [Concomitant]
     Active Substance: ACETAMINOPHEN
     Dates: start: 20200727
  2. RIFAMPIN. [Concomitant]
     Active Substance: RIFAMPIN
     Dates: start: 20200731
  3. AMLODIPINE [Concomitant]
     Active Substance: AMLODIPINE BESYLATE
     Dates: start: 20200726, end: 20200818
  4. LABETALOL [Concomitant]
     Active Substance: LABETALOL\LABETALOL HYDROCHLORIDE
     Dates: start: 20200730
  5. MORPHINE [Concomitant]
     Active Substance: MORPHINE
     Dates: start: 20200731, end: 20200815
  6. LOSARTAN. [Concomitant]
     Active Substance: LOSARTAN
     Dates: start: 20200727
  7. GABAPENTIN. [Concomitant]
     Active Substance: GABAPENTIN
     Dates: start: 20200727
  8. METHOCARBAMOL. [Concomitant]
     Active Substance: METHOCARBAMOL
     Dates: start: 20200727
  9. OXYCODONE [Concomitant]
     Active Substance: OXYCODONE
     Dates: start: 20200727, end: 20200818
  10. DAPTOMYCIN. [Suspect]
     Active Substance: DAPTOMYCIN
     Indication: ARTHRITIS INFECTIVE
     Route: 042
     Dates: start: 20200804, end: 20200805

REACTIONS (3)
  - Chills [None]
  - Pyrexia [None]
  - Hypotension [None]

NARRATIVE: CASE EVENT DATE: 20200805
